FAERS Safety Report 8992737 (Version 1)
Quarter: 2013Q1

REPORT INFORMATION
  Report Type: Spontaneous
  Country: FR (occurrence: FR)
  Receive Date: 20130102
  Receipt Date: 20130102
  Transmission Date: 20140127
  Serious: Yes (Hospitalization)
  Sender: FDA-Public Use
  Company Number: FR-ROCHE-1175667

PATIENT
  Age: 41 Year
  Sex: Male
  Weight: 82 kg

DRUGS (5)
  1. ACTILYSE [Suspect]
     Indication: MYOCARDIAL INFARCTION
     Route: 042
     Dates: start: 19960505
  2. HEPARIN [Concomitant]
     Indication: ACUTE MYOCARDIAL INFARCTION
     Route: 042
     Dates: start: 19960505, end: 19960506
  3. TRINITRINE [Concomitant]
     Indication: ACUTE MYOCARDIAL INFARCTION
     Route: 042
     Dates: start: 19960505, end: 19960510
  4. AMIODARONE [Concomitant]
     Indication: VENTRICULAR FIBRILLATION
     Route: 048
  5. XYLOCAINE [Concomitant]
     Indication: ACUTE MYOCARDIAL INFARCTION
     Route: 042
     Dates: start: 19960505, end: 19960507

REACTIONS (2)
  - Hemiplegia [Recovered/Resolved]
  - Haematoma [Recovered/Resolved]
